FAERS Safety Report 23686116 (Version 1)
Quarter: 2024Q1

REPORT INFORMATION
  Report Type: Spontaneous
  Country: FR (occurrence: FR)
  Receive Date: 20240329
  Receipt Date: 20240329
  Transmission Date: 20240410
  Serious: Yes (Other)
  Sender: FDA-Public Use
  Company Number: FR-AFSSAPS-SE2023001086

PATIENT
  Age: 75 Year
  Sex: Male
  Weight: 82.4 kg

DRUGS (5)
  1. PANTOPRAZOLE [Suspect]
     Active Substance: PANTOPRAZOLE
     Indication: Intestinal obstruction
     Dosage: SAP OF 2 ML/HOUR
     Route: 040
     Dates: start: 20231212, end: 20231215
  2. PANTOPRAZOLE [Suspect]
     Active Substance: PANTOPRAZOLE
     Dosage: 40 MG X2/J
     Route: 065
     Dates: start: 20231216
  3. LOVENOX [Suspect]
     Active Substance: ENOXAPARIN SODIUM
     Indication: Thrombosis prophylaxis
     Dosage: 4000 INTERNATIONAL UNIT, DAILY
     Route: 058
     Dates: start: 20231209
  4. ASPIRIN\CLOPIDOGREL [Suspect]
     Active Substance: ASPIRIN\CLOPIDOGREL
     Indication: Peripheral arterial occlusive disease
     Dosage: 1 DOSAGE FORM, DAILY
     Route: 048
     Dates: start: 20231209, end: 20231218
  5. DAPTOMYCIN [Suspect]
     Active Substance: DAPTOMYCIN
     Indication: Staphylococcal bacteraemia
     Dosage: 850 MILLIGRAM, DAILY
     Route: 040
     Dates: start: 20231207, end: 20231221

REACTIONS (1)
  - Vascular purpura [Not Recovered/Not Resolved]

NARRATIVE: CASE EVENT DATE: 20231219
